FAERS Safety Report 21272674 (Version 5)
Quarter: 2022Q4

REPORT INFORMATION
  Report Type: Spontaneous
  Country: AU (occurrence: None)
  Receive Date: 20220830
  Receipt Date: 20221007
  Transmission Date: 20230112
  Serious: Yes (Hospitalization, Other)
  Sender: FDA-Public Use
  Company Number: AU-ROCHE-3167337

PATIENT
  Sex: Male

DRUGS (9)
  1. RITUXIMAB [Suspect]
     Active Substance: RITUXIMAB
     Indication: Diffuse large B-cell lymphoma
     Dosage: 1ST SYSTEMIC TREATMENT (R-CHOP), PARTIAL REMISSION
     Route: 065
     Dates: start: 20201101, end: 20210401
  2. RITUXIMAB [Suspect]
     Active Substance: RITUXIMAB
     Dosage: 2ND LINE SYSTEMIC TREATMENT (R-DHAP), PARTIAL REMISSION
     Route: 065
     Dates: start: 20210701, end: 20210801
  3. CYCLOPHOSPHAMIDE\DOXORUBICIN\PREDNISONE\VINCRISTINE [Suspect]
     Active Substance: CYCLOPHOSPHAMIDE\DOXORUBICIN\PREDNISONE\VINCRISTINE
     Indication: Diffuse large B-cell lymphoma
     Route: 065
     Dates: start: 20201101, end: 20210401
  4. CISPLATIN\CYTARABINE\DEXAMETHASONE [Suspect]
     Active Substance: CISPLATIN\CYTARABINE\DEXAMETHASONE
     Indication: Diffuse large B-cell lymphoma
     Dosage: 2ND LINE SYSTEMIC TREATMENT (R-DHAP), PARTIAL REMISSION
     Route: 065
     Dates: start: 20210701, end: 20210801
  5. CARMUSTINE\CYTARABINE\ETOPOSIDE\MELPHALAN [Suspect]
     Active Substance: CARMUSTINE\CYTARABINE\ETOPOSIDE\MELPHALAN
     Indication: Diffuse large B-cell lymphoma
     Dosage: 3RD LINE SYSTEMIC TREATMENT (BEAM AUTOSCT), NO RESPONSE/STABLE DISEASE
     Route: 065
     Dates: start: 20210902, end: 20210902
  6. FLECAINIDE [Concomitant]
     Active Substance: FLECAINIDE
  7. METOPROLOL [Concomitant]
     Active Substance: METOPROLOL
  8. BACTRIM [Concomitant]
     Active Substance: SULFAMETHOXAZOLE\TRIMETHOPRIM
  9. VALACYCLOVIR HYDROCHLORIDE [Concomitant]
     Active Substance: VALACYCLOVIR HYDROCHLORIDE

REACTIONS (7)
  - Disease progression [Unknown]
  - Neutropenia [Unknown]
  - Pyrexia [Unknown]
  - Cytopenia [Unknown]
  - Pyrexia [Unknown]
  - Thrombocytopenia [Unknown]
  - Neuropathy peripheral [Unknown]
